FAERS Safety Report 18493597 (Version 1)
Quarter: 2020Q4

REPORT INFORMATION
  Report Type: Spontaneous
  Country: US (occurrence: US)
  Receive Date: 20201111
  Receipt Date: 20201111
  Transmission Date: 20210114
  Serious: No
  Sender: FDA-Public Use
  Company Number: US-TAKEDA-2020TUS044740

PATIENT
  Sex: Female
  Weight: 78.46 kg

DRUGS (35)
  1. EPINEPHRINE. [Concomitant]
     Active Substance: EPINEPHRINE
  2. SIMVASTATIN. [Concomitant]
     Active Substance: SIMVASTATIN
  3. OMEPRAZOLE. [Concomitant]
     Active Substance: OMEPRAZOLE
  4. GLUCOSAMIN + CHONDROITIN [Concomitant]
  5. ALEVE [Concomitant]
     Active Substance: NAPROXEN SODIUM
  6. ASPIRIN (E.C.) [Concomitant]
     Active Substance: ASPIRIN
  7. VITAMIN D3 [Concomitant]
     Active Substance: CHOLECALCIFEROL
  8. PROBIOTICS NOS [Concomitant]
     Active Substance: PROBIOTICS NOS
  9. BENADRYL ALLERGY [CETIRIZINE HYDROCHLORIDE] [Concomitant]
     Active Substance: CETIRIZINE HYDROCHLORIDE
  10. ACETAMINOPHEN. [Concomitant]
     Active Substance: ACETAMINOPHEN
  11. DIPHENHYDRAMINE. [Concomitant]
     Active Substance: DIPHENHYDRAMINE
  12. RESTASIS [Concomitant]
     Active Substance: CYCLOSPORINE
  13. ZANTAC [Concomitant]
     Active Substance: RANITIDINE HYDROCHLORIDE
  14. BIOTIN [Concomitant]
     Active Substance: BIOTIN
  15. FINACEA [Concomitant]
     Active Substance: AZELAIC ACID
  16. PROAIR HFA [Concomitant]
     Active Substance: ALBUTEROL SULFATE
  17. ATENOLOL. [Concomitant]
     Active Substance: ATENOLOL
  18. AFRIN [PHENYLEPHRINE HYDROCHLORIDE] [Concomitant]
     Active Substance: PHENYLEPHRINE HYDROCHLORIDE
  19. MULTIVITAMINS [VITAMINS NOS] [Concomitant]
     Active Substance: VITAMINS
  20. ANTI FUNGAL CREAM [CLOTRIMAZOLE] [Concomitant]
  21. HYQVIA [Suspect]
     Active Substance: HUMAN IMMUNOGLOBULIN G\HYALURONIDASE RECOMBINANT HUMAN
     Indication: IMMUNODEFICIENCY COMMON VARIABLE
     Dosage: 30 GRAM, Q4WEEKS
     Route: 058
     Dates: start: 20170119
  22. FLUBLOK QUADRIVALENT NOS [Concomitant]
     Active Substance: INFLUENZA VIRUS VACCINE
  23. CEFDINIR. [Concomitant]
     Active Substance: CEFDINIR
  24. LIDOCAINE/PRILOCAINE [Concomitant]
     Active Substance: LIDOCAINE\PRILOCAINE
  25. CALCIUM [Concomitant]
     Active Substance: CALCIUM
  26. LMX4 [Concomitant]
     Active Substance: LIDOCAINE
  27. ADVAIR HFA [Concomitant]
     Active Substance: FLUTICASONE PROPIONATE\SALMETEROL XINAFOATE
  28. MICARDIS [Concomitant]
     Active Substance: TELMISARTAN
  29. NORMAL SALINE [Concomitant]
     Active Substance: SODIUM CHLORIDE
  30. FEXOFENADINE [Concomitant]
     Active Substance: FEXOFENADINE HYDROCHLORIDE
  31. DESONIDE. [Concomitant]
     Active Substance: DESONIDE
  32. CLONAZEPAM. [Concomitant]
     Active Substance: CLONAZEPAM
  33. SALINE NASAL MIST [Concomitant]
  34. MELOXICAM. [Concomitant]
     Active Substance: MELOXICAM
  35. OSPHENA [Concomitant]
     Active Substance: OSPEMIFENE

REACTIONS (1)
  - Poor venous access [Unknown]
